FAERS Safety Report 19801769 (Version 1)
Quarter: 2021Q3

REPORT INFORMATION
  Report Type: Report from Study
  Country: None (occurrence: US)
  Receive Date: 20210907
  Receipt Date: 20210907
  Transmission Date: 20211014
  Serious: Yes (Other)
  Sender: FDA-Public Use
  Company Number: US-ABBVIE-21K-163-4065547-00

PATIENT
  Sex: Female

DRUGS (3)
  1. MODERNA COVID?19 VACCINE [Concomitant]
     Active Substance: CX-024414
     Indication: COVID-19 IMMUNISATION
     Dates: start: 20210225, end: 20210225
  2. RINVOQ [Suspect]
     Active Substance: UPADACITINIB
     Indication: RHEUMATOID ARTHRITIS
     Route: 048
  3. MODERNA COVID?19 VACCINE [Concomitant]
     Active Substance: CX-024414
     Dates: start: 20210328, end: 20210328

REACTIONS (4)
  - Cardiac ablation [Unknown]
  - Cardiac procedure complication [Unknown]
  - Pericardial effusion [Unknown]
  - Pain in extremity [Unknown]

NARRATIVE: CASE EVENT DATE: 2021
